FAERS Safety Report 21807131 (Version 1)
Quarter: 2023Q1

REPORT INFORMATION
  Report Type: Spontaneous
  Country: US (occurrence: US)
  Receive Date: 20230102
  Receipt Date: 20230102
  Transmission Date: 20230417
  Serious: No
  Sender: FDA-Public Use
  Company Number: US-009507513-2212USA010622

PATIENT
  Age: 18 Year
  Sex: Male

DRUGS (4)
  1. TEMODAR [Suspect]
     Active Substance: TEMOZOLOMIDE
     Indication: Testicular germ cell cancer metastatic
     Route: 048
  2. TEMODAR [Suspect]
     Active Substance: TEMOZOLOMIDE
     Indication: Glioneuronal tumour
  3. IRINOTECAN [Concomitant]
     Active Substance: IRINOTECAN
     Indication: Testicular germ cell cancer metastatic
  4. IRINOTECAN [Concomitant]
     Active Substance: IRINOTECAN
     Indication: Glioneuronal tumour

REACTIONS (1)
  - Off label use [Unknown]
